FAERS Safety Report 25111756 (Version 1)
Quarter: 2025Q1

REPORT INFORMATION
  Report Type: Spontaneous
  Country: US (occurrence: US)
  Receive Date: 20250324
  Receipt Date: 20250324
  Transmission Date: 20250409
  Serious: Yes (Hospitalization, Other)
  Sender: JOHNSON AND JOHNSON
  Company Number: US-JNJFOC-20250245360

PATIENT

DRUGS (1)
  1. XARELTO [Suspect]
     Active Substance: RIVAROXABAN
     Indication: Product used for unknown indication
     Route: 048
     Dates: end: 20250215

REACTIONS (3)
  - Hospitalisation [Unknown]
  - Anti factor X antibody positive [Not Recovered/Not Resolved]
  - Hepatic failure [Unknown]

NARRATIVE: CASE EVENT DATE: 20250212
